FAERS Safety Report 7353783-5 (Version None)
Quarter: 2011Q1

REPORT INFORMATION
  Report Type: 
  Country: None (occurrence: None)
  Receive Date: 20110315
  Receipt Date: 20110310
  Transmission Date: 20110831
  Serious: Yes (Hospitalization, Other)
  Sender: FDA-Public Use
  Company Number: US-PFIZER INC-2011003905

PATIENT
  Sex: Male

DRUGS (1)
  1. CHANTIX [Suspect]
     Indication: SMOKING CESSATION THERAPY
     Dosage: 1 MG, UNK
     Dates: start: 20081016, end: 20081201

REACTIONS (6)
  - MENTAL DISORDER [None]
  - SUICIDE ATTEMPT [None]
  - BIPOLAR DISORDER [None]
  - ANXIETY [None]
  - INTENTIONAL OVERDOSE [None]
  - DEPRESSION [None]
